FAERS Safety Report 5316895-3 (Version None)
Quarter: 2007Q2

REPORT INFORMATION
  Report Type: 
  Country: None (occurrence: None)
  Receive Date: 20070504
  Receipt Date: 20070427
  Transmission Date: 20071010
  Serious: Yes (Hospitalization)
  Sender: FDA-Public Use
  Company Number: FR-GLAXOSMITHKLINE-B0465808A

PATIENT
  Age: 82 Year
  Sex: Female
  Weight: 63 kg

DRUGS (7)
  1. ARIXTRA [Suspect]
     Dosage: 7.5MG PER DAY
     Route: 058
     Dates: start: 20070320, end: 20070325
  2. DIAMICRON [Concomitant]
     Dosage: 90MG PER DAY
  3. RISORDAN [Concomitant]
     Dosage: 40MG PER DAY
  4. ATENOLOL [Concomitant]
     Dosage: 50MG PER DAY
  5. NEXIUM [Concomitant]
     Dosage: 20MG PER DAY
  6. DIANTALVIC [Concomitant]
     Dosage: 6UNIT PER DAY
  7. ZOLPIDEM [Concomitant]
     Dosage: 1UNIT PER DAY

REACTIONS (1)
  - MELAENA [None]
